FAERS Safety Report 7056437-8 (Version None)
Quarter: 2010Q4

REPORT INFORMATION
  Report Type: 
  Country: None (occurrence: None)
  Receive Date: 20101021
  Receipt Date: 20101011
  Transmission Date: 20110411
  Serious: Yes (Hospitalization)
  Sender: FDA-Public Use
  Company Number: RU-ROCHE-717568

PATIENT
  Sex: Female
  Weight: 64.4 kg

DRUGS (5)
  1. TOCILIZUMAB [Suspect]
     Indication: RHEUMATOID ARTHRITIS
     Dosage: UNITS:ML, LAST DOSE PRIOR TO SAE: 29 JUNE 2010
     Route: 042
     Dates: start: 20100112, end: 20100727
  2. METHOTREXATE [Suspect]
     Indication: RHEUMATOID ARTHRITIS
     Dosage: DRUG NAME:MTX/PBO. LAST DOSE PRIOR TO SAE: 22 JULY 2010.
     Route: 048
     Dates: start: 20100114, end: 20100727
  3. NIMESULIDE [Concomitant]
     Dates: start: 20090804
  4. FOLIC ACID [Concomitant]
     Dates: start: 20090804
  5. OMEPRAZOLE [Concomitant]
     Dates: start: 20090804

REACTIONS (1)
  - ALVEOLITIS [None]
